FAERS Safety Report 13178524 (Version 1)
Quarter: 2017Q1

REPORT INFORMATION
  Report Type: Spontaneous
  Country: KZ (occurrence: KZ)
  Receive Date: 20170202
  Receipt Date: 20170202
  Transmission Date: 20170428
  Serious: Yes (Death, Life-Threatening, Hospitalization, Other)
  Sender: FDA-Public Use
  Company Number: KZ-ACCORD-047878

PATIENT
  Age: 44 Year
  Sex: Male

DRUGS (6)
  1. HEPARIN [Concomitant]
     Active Substance: HEPARIN SODIUM
     Dosage: LOADING DOSE: 5000 IU ADMINISTERED 2 H BEFORE PCI
     Route: 042
  2. IVABRADINE/IVABRADINE HYDROCHLORIDE [Concomitant]
  3. CLOPIDOGREL [Suspect]
     Active Substance: CLOPIDOGREL BISULFATE
     Indication: ANTIPLATELET THERAPY
     Dosage: LOADING DOSE: 600 MG ADMINISTERED 2 H BEFORE PCI
  4. ACETYLSALICYLIC ACID [Concomitant]
     Active Substance: ASPIRIN
     Indication: ANTIPLATELET THERAPY
     Dosage: LOADING DOSE: 325 MG ADMINISTERED 2 H BEFORE PCI
  5. ATORVASTATIN [Concomitant]
     Active Substance: ATORVASTATIN
  6. AMIODARONE [Concomitant]
     Active Substance: AMIODARONE
     Route: 042

REACTIONS (2)
  - Vascular stent thrombosis [Fatal]
  - Drug ineffective [Fatal]
